FAERS Safety Report 11622723 (Version 1)
Quarter: 2015Q4

REPORT INFORMATION
  Report Type: Spontaneous
  Country: US (occurrence: US)
  Receive Date: 20151013
  Receipt Date: 20151013
  Transmission Date: 20160304
  Serious: No
  Sender: FDA-Public Use
  Company Number: US-JNJFOC-20141220906

PATIENT
  Age: 3 Year
  Sex: Male
  Weight: 20.41 kg

DRUGS (2)
  1. INFANTS TYLENOL [Suspect]
     Active Substance: ACETAMINOPHEN
     Indication: PYREXIA
     Dosage: ABOUT 2.5 ML
     Route: 048
     Dates: start: 20141229
  2. INFANTS TYLENOL [Suspect]
     Active Substance: ACETAMINOPHEN
     Indication: VIRAL INFECTION
     Dosage: ABOUT 2.5 ML
     Route: 048
     Dates: start: 20141229

REACTIONS (3)
  - Product use issue [Unknown]
  - Incorrect dose administered [Unknown]
  - Product label issue [Unknown]

NARRATIVE: CASE EVENT DATE: 20141229
